FAERS Safety Report 16876902 (Version 2)
Quarter: 2019Q4

REPORT INFORMATION
  Report Type: Report from Study
  Country: US (occurrence: US)
  Receive Date: 20191002
  Receipt Date: 20191101
  Transmission Date: 20200122
  Serious: Yes (Other)
  Sender: FDA-Public Use
  Company Number: US-JNJFOC-20190807439

PATIENT
  Sex: Male

DRUGS (3)
  1. IMBRUVICA [Suspect]
     Active Substance: IBRUTINIB
     Dosage: 420 MG, QD
     Route: 048
     Dates: start: 20190715
  2. IMBRUVICA [Suspect]
     Active Substance: IBRUTINIB
     Dosage: 420 MG, QD
     Route: 048
     Dates: start: 20190611
  3. IMBRUVICA [Suspect]
     Active Substance: IBRUTINIB
     Indication: LYMPHOCYTIC LEUKAEMIA
     Dosage: 420 MG, QD
     Route: 048
     Dates: start: 20190607

REACTIONS (14)
  - Precancerous skin lesion [Not Recovered/Not Resolved]
  - Squamous cell carcinoma [Unknown]
  - Flushing [Not Recovered/Not Resolved]
  - Increased tendency to bruise [Not Recovered/Not Resolved]
  - Diarrhoea [Unknown]
  - Pollakiuria [Not Recovered/Not Resolved]
  - Fatigue [Unknown]
  - Retching [Unknown]
  - Blister [Unknown]
  - Erythema [Not Recovered/Not Resolved]
  - Alopecia [Unknown]
  - Vertigo [Unknown]
  - Blood urine present [Unknown]
  - Haemoglobin decreased [Recovering/Resolving]
